FAERS Safety Report 6857352-2 (Version None)
Quarter: 2010Q3

REPORT INFORMATION
  Report Type: 
  Country: None (occurrence: None)
  Receive Date: 20100719
  Receipt Date: 20100707
  Transmission Date: 20110219
  Serious: Yes (Death, Other)
  Sender: FDA-Public Use
  Company Number: US-PFIZER INC-2010022729

PATIENT
  Sex: Female
  Weight: 114.3 kg

DRUGS (12)
  1. REVATIO [Suspect]
     Indication: PULMONARY HYPERTENSION
     Dosage: 40 MG, 3X/DAY
     Route: 048
     Dates: start: 20070101
  2. INSULIN [Concomitant]
  3. PREDNISONE [Concomitant]
  4. WARFARIN [Concomitant]
  5. SIMVASTATIN [Concomitant]
  6. LANSOPRAZOLE [Concomitant]
  7. OXYGEN [Concomitant]
  8. ALBUTEROL [Concomitant]
  9. VALSARTAN [Concomitant]
  10. ASPIRIN [Concomitant]
  11. AMITRIPTYLINE [Concomitant]
  12. GABAPENTIN [Concomitant]

REACTIONS (2)
  - CEREBROVASCULAR ACCIDENT [None]
  - PULMONARY HYPERTENSION [None]
